FAERS Safety Report 25737582 (Version 3)
Quarter: 2025Q4

REPORT INFORMATION
  Report Type: Spontaneous
  Country: JP (occurrence: JP)
  Receive Date: 20250828
  Receipt Date: 20251128
  Transmission Date: 20260118
  Serious: Yes (Hospitalization)
  Sender: MERCK SHARP & DOHME LLC
  Company Number: JP-009507513-2321402

PATIENT
  Age: 9 Decade

DRUGS (1)
  1. KEYTRUDA [Suspect]
     Active Substance: PEMBROLIZUMAB
     Indication: Malignant urinary tract neoplasm

REACTIONS (5)
  - Liver disorder [Unknown]
  - Myasthenia gravis [Unknown]
  - Myositis [Unknown]
  - Myocarditis [Unknown]
  - Spinal stenosis [Unknown]
